FAERS Safety Report 12810640 (Version 1)
Quarter: 2016Q4

REPORT INFORMATION
  Report Type: Spontaneous
  Country: US (occurrence: US)
  Receive Date: 20161005
  Receipt Date: 20161005
  Transmission Date: 20170207
  Serious: Yes (Hospitalization)
  Sender: FDA-Public Use
  Company Number: US-B.I. PHARMACEUTICALS,INC./RIDGEFIELD-2016-BI-063817

PATIENT
  Age: 87 Year
  Sex: Female

DRUGS (2)
  1. PRADAXA [Suspect]
     Active Substance: DABIGATRAN ETEXILATE MESYLATE
     Indication: ATRIAL FIBRILLATION
     Route: 048
     Dates: start: 201603, end: 20160912
  2. ARICEPT [Concomitant]
     Active Substance: DONEPEZIL HYDROCHLORIDE
     Indication: DEMENTIA ALZHEIMER^S TYPE
     Dosage: FORMULATION: TABLET;
     Route: 048
     Dates: start: 2016

REACTIONS (5)
  - Pelvic fracture [Recovered/Resolved]
  - Night sweats [Not Recovered/Not Resolved]
  - Fall [Recovered/Resolved]
  - Off label use [Recovered/Resolved]
  - Rib fracture [Recovered/Resolved]

NARRATIVE: CASE EVENT DATE: 201603
